FAERS Safety Report 4975811-4 (Version None)
Quarter: 2006Q2

REPORT INFORMATION
  Report Type: 
  Country: None (occurrence: None)
  Receive Date: 20060411
  Receipt Date: 20060330
  Transmission Date: 20061013
  Serious: Yes (Other)
  Sender: FDA-Public Use
  Company Number: 2006RL000110

PATIENT
  Sex: Female

DRUGS (9)
  1. OMACOR [Suspect]
     Indication: BLOOD CHOLESTEROL INCREASED
     Dosage: 4 GM; QD; PO
     Route: 048
     Dates: start: 20060301
  2. OMACOR [Suspect]
     Indication: BLOOD TRIGLYCERIDES INCREASED
     Dosage: 4 GM; QD; PO
     Route: 048
     Dates: start: 20060301
  3. PROCARDIA [Concomitant]
  4. WELCHOL [Concomitant]
  5. SINGULAIR [Concomitant]
  6. PROVENTIL [Concomitant]
  7. REMERON [Concomitant]
  8. ZEMBOTOL [SIC] [Concomitant]
  9. ALPRAZOLAM [Concomitant]

REACTIONS (7)
  - ASTHENIA [None]
  - DYSPNOEA [None]
  - FATIGUE [None]
  - HALLUCINATION [None]
  - HEPATIC ENZYME INCREASED [None]
  - INSOMNIA [None]
  - TREMOR [None]
